FAERS Safety Report 4572157-3 (Version None)
Quarter: 2005Q1

REPORT INFORMATION
  Report Type: 
  Country: None (occurrence: None)
  Receive Date: 20050202
  Receipt Date: 20050120
  Transmission Date: 20050727
  Serious: Yes (Death, Life-Threatening, Other)
  Sender: FDA-Public Use
  Company Number: 2005-BP-00937RO

PATIENT

DRUGS (3)
  1. CYCLOPHOSPHAMIDE [Suspect]
     Indication: RHABDOMYOSARCOMA
  2. VINCRISTINE [Suspect]
     Indication: RHABDOMYOSARCOMA
  3. DACTINOMYCIN [Suspect]
     Indication: RHABDOMYOSARCOMA

REACTIONS (29)
  - ANAEMIA [None]
  - CAECITIS [None]
  - CARDIAC ARREST [None]
  - DIFFUSE ALVEOLAR DAMAGE [None]
  - DRUG TOXICITY [None]
  - ENTERITIS [None]
  - GASTROINTESTINAL MUCOSITIS [None]
  - HAEMATOTOXICITY [None]
  - HEPATIC FUNCTION ABNORMAL [None]
  - INFECTION [None]
  - LEUKOPENIA [None]
  - LYMPHOPENIA [None]
  - MALIGNANT FIBROUS HISTIOCYTOMA [None]
  - MYELODYSPLASTIC SYNDROME [None]
  - NAUSEA [None]
  - NEUROTOXICITY [None]
  - NEUTROPENIA [None]
  - PANCREATITIS [None]
  - PERIPHERAL MOTOR NEUROPATHY [None]
  - PERIPHERAL SENSORY NEUROPATHY [None]
  - PYREXIA [None]
  - RADIATION PNEUMONITIS [None]
  - SEPTIC SHOCK [None]
  - SKIN EXFOLIATION [None]
  - SKIN REACTION [None]
  - STOMATITIS [None]
  - SUDDEN DEATH [None]
  - THROMBOCYTOPENIA [None]
  - VOMITING [None]
